FAERS Safety Report 5134191-4 (Version None)
Quarter: 2006Q4

REPORT INFORMATION
  Report Type: 
  Country: None (occurrence: None)
  Receive Date: 20061019
  Receipt Date: 20061002
  Transmission Date: 20070319
  Serious: Yes (Hospitalization)
  Sender: FDA-Public Use
  Company Number: DE200609006898

PATIENT
  Age: 35 Year
  Sex: Female

DRUGS (2)
  1. CYMBALTA [Suspect]
     Indication: DEPRESSION
     Dosage: 30 MG, EACH MORNING, ORAL
     Route: 048
  2. LORAZEPAM [Concomitant]

REACTIONS (3)
  - LOWER LIMB FRACTURE [None]
  - PELVIC FRACTURE [None]
  - SUICIDE ATTEMPT [None]
